FAERS Safety Report 4449440-5 (Version None)
Quarter: 2004Q3

REPORT INFORMATION
  Report Type: 
  Country: None (occurrence: None)
  Receive Date: 20040913
  Receipt Date: 20040831
  Transmission Date: 20050211
  Serious: No
  Sender: FDA-Public Use
  Company Number: 2004UW18647

PATIENT
  Age: 66 Year
  Sex: Female
  Weight: 60.1016 kg

DRUGS (3)
  1. NOLVADEX [Suspect]
     Indication: BREAST CANCER
     Dosage: 2 DF DAILY PO
     Route: 048
     Dates: start: 19990301, end: 20040224
  2. ALTACE [Concomitant]
  3. VIOXX [Concomitant]

REACTIONS (1)
  - TRANSIENT ISCHAEMIC ATTACK [None]
